FAERS Safety Report 20140977 (Version 1)
Quarter: 2021Q4

REPORT INFORMATION
  Report Type: Spontaneous
  Country: US (occurrence: US)
  Receive Date: 20211202
  Receipt Date: 20211202
  Transmission Date: 20220304
  Serious: No
  Sender: FDA-Public Use
  Company Number: US-GW PHARMA-202111USGW05880

PATIENT

DRUGS (4)
  1. EPIDIOLEX [Suspect]
     Active Substance: CANNABIDIOL
     Indication: Partial seizures
     Dosage: 170 MILLIGRAM, BID
     Route: 048
     Dates: start: 202111, end: 202111
  2. EPIDIOLEX [Suspect]
     Active Substance: CANNABIDIOL
     Indication: Focal dyscognitive seizures
     Dosage: 330 MILLIGRAM, BID
     Route: 048
     Dates: start: 202111, end: 202111
  3. EPIDIOLEX [Suspect]
     Active Substance: CANNABIDIOL
     Indication: Epilepsy
     Dosage: 500 MILLIGRAM, BID
     Route: 048
     Dates: start: 202111, end: 202111
  4. EPIDIOLEX [Suspect]
     Active Substance: CANNABIDIOL
     Indication: Epilepsy
     Dosage: 650 MILLIGRAM, BID, FOR A WEEK (THEN 800 MILLIGRAM, BID THEREAFTER)
     Route: 048
     Dates: start: 202111

REACTIONS (4)
  - Mood swings [Unknown]
  - Diarrhoea [Unknown]
  - Product use in unapproved indication [Unknown]
  - Wrong technique in product usage process [Unknown]

NARRATIVE: CASE EVENT DATE: 20211101
